FAERS Safety Report 24269800 (Version 2)
Quarter: 2024Q3

REPORT INFORMATION
  Report Type: Spontaneous
  Country: US (occurrence: US)
  Receive Date: 20240830
  Receipt Date: 20240912
  Transmission Date: 20241017
  Serious: Yes (Other)
  Sender: NOVARTIS
  Company Number: US-002147023-NVSC2021US318462

PATIENT

DRUGS (1)
  1. FINGOLIMOD [Suspect]
     Active Substance: FINGOLIMOD
     Indication: Foetal exposure during pregnancy
     Dosage: UNK
     Route: 065

REACTIONS (3)
  - Combined immunodeficiency [Unknown]
  - Lymphopenia [Unknown]
  - Foetal exposure during pregnancy [Unknown]
